FAERS Safety Report 18642329 (Version 3)
Quarter: 2021Q1

REPORT INFORMATION
  Report Type: Spontaneous
  Country: FR (occurrence: FR)
  Receive Date: 20201221
  Receipt Date: 20210216
  Transmission Date: 20210419
  Serious: Yes (Hospitalization, Other)
  Sender: FDA-Public Use
  Company Number: NVSC2020FR332183

PATIENT
  Sex: Female
  Weight: 45 kg

DRUGS (15)
  1. CELLCEPT [Concomitant]
     Active Substance: MYCOPHENOLATE MOFETIL\MYCOPHENOLATE MOFETIL HYDROCHLORIDE
     Dosage: 1500 MG, QD (1500 MG, ONCE DAILY (TOTAL DAILY DOSE))
     Route: 065
     Dates: start: 20170915, end: 20180131
  2. TACROLIMUS. [Suspect]
     Active Substance: TACROLIMUS
     Dosage: 6 MG, QD
     Route: 048
     Dates: start: 20171210
  3. CORTANCYL [Concomitant]
     Active Substance: PREDNISONE
     Dosage: 15 MG, ONCE DAILY (TOTAL DAILY DOSE)
     Route: 065
     Dates: start: 20170916, end: 20170930
  4. CERTICAN [Concomitant]
     Active Substance: EVEROLIMUS
     Indication: IMMUNOSUPPRESSION
     Dosage: 1.5 MG, ONCE DAILY (TOTAL DAILY DOSE)
     Route: 065
     Dates: start: 20180214, end: 20190118
  5. CERTICAN [Concomitant]
     Active Substance: EVEROLIMUS
     Dosage: 1.75 MG, ONCE DAILY (TOTAL DAILY DOSE)
     Route: 065
     Dates: start: 20190119, end: 20190222
  6. CELLCEPT [Concomitant]
     Active Substance: MYCOPHENOLATE MOFETIL\MYCOPHENOLATE MOFETIL HYDROCHLORIDE
     Indication: IMMUNOSUPPRESSION
     Dosage: 2000 MG, QD (2000 MG, ONCE DAILY (TOTAL DAILY DOSE))
     Route: 065
     Dates: start: 20170911, end: 20170914
  7. TACROLIMUS. [Suspect]
     Active Substance: TACROLIMUS
     Dosage: 8 MG, QD
     Route: 048
     Dates: start: 20171003
  8. CERTICAN [Concomitant]
     Active Substance: EVEROLIMUS
     Dosage: 3 MG, ONCE DAILY (TOTAL DAILY DOSE)
     Route: 065
     Dates: start: 20191207, end: 20200513
  9. CELLCEPT [Concomitant]
     Active Substance: MYCOPHENOLATE MOFETIL\MYCOPHENOLATE MOFETIL HYDROCHLORIDE
     Dosage: 1000 MG, QD (1000 MG, ONCE DAILY (TOTAL DAILY DOSE))
     Route: 065
     Dates: start: 20180201, end: 20180214
  10. TACROLIMUS. [Suspect]
     Active Substance: TACROLIMUS
     Indication: IMMUNOSUPPRESSION
     Dosage: 9 MG, QD
     Route: 048
     Dates: start: 20170912
  11. CORTANCYL [Concomitant]
     Active Substance: PREDNISONE
     Indication: IMMUNOSUPPRESSION
     Dosage: 20 MG, ONCE DAILY (TOTAL DAILY DOSE)
     Route: 065
     Dates: start: 20170911, end: 20170915
  12. CERTICAN [Concomitant]
     Active Substance: EVEROLIMUS
     Dosage: 2 MG, ONCE DAILY (TOTAL DAILY DOSE)
     Route: 065
     Dates: start: 20200514
  13. CORTANCYL [Concomitant]
     Active Substance: PREDNISONE
     Dosage: 5 MG, ONCE DAILY (TOTAL DAILY DOSE)
     Route: 065
     Dates: start: 20171211
  14. CERTICAN [Concomitant]
     Active Substance: EVEROLIMUS
     Dosage: 2 MG, ONCE DAILY (TOTAL DAILY DOSE)
     Route: 065
     Dates: start: 20190223, end: 20191206
  15. CORTANCYL [Concomitant]
     Active Substance: PREDNISONE
     Dosage: 10 MG, ONCE DAILY (TOTAL DAILY DOSE)
     Route: 065
     Dates: start: 20171001, end: 20171210

REACTIONS (7)
  - Pyelonephritis [Recovered/Resolved]
  - Renal graft infection [Recovered/Resolved]
  - Pyelonephritis [Recovered/Resolved]
  - Polyomavirus-associated nephropathy [Not Recovered/Not Resolved]
  - Renal graft infection [Recovered/Resolved]
  - BK virus infection [Not Recovered/Not Resolved]
  - Polyomavirus viraemia [Not Recovered/Not Resolved]

NARRATIVE: CASE EVENT DATE: 20170927
